FAERS Safety Report 4758516-4 (Version None)
Quarter: 2005Q3

REPORT INFORMATION
  Report Type: 
  Country: None (occurrence: None)
  Receive Date: 20050830
  Receipt Date: 20050830
  Transmission Date: 20060218
  Serious: Yes (Hospitalization)
  Sender: FDA-Public Use
  Company Number: None

PATIENT
  Age: 70 Year
  Sex: Female

DRUGS (1)
  1. HYDROMORPHONE HCL [Suspect]
     Dosage: PCA -6MG/80 ML-  COMPOUND  IV   INJ
     Route: 042
     Dates: start: 20050525, end: 20050528

REACTIONS (4)
  - AGITATION [None]
  - ANXIETY [None]
  - DELIRIUM [None]
  - RESTLESSNESS [None]
